FAERS Safety Report 4866303-1 (Version None)
Quarter: 2005Q4

REPORT INFORMATION
  Report Type: 
  Country: None (occurrence: None)
  Receive Date: 20051221
  Receipt Date: 20051214
  Transmission Date: 20060501
  Serious: Yes (Other)
  Sender: FDA-Public Use
  Company Number: 2005168914

PATIENT
  Age: 69 Year
  Sex: Male
  Weight: 96.1626 kg

DRUGS (3)
  1. LIPITOR [Suspect]
     Indication: BLOOD CHOLESTEROL
     Dosage: 10 MG (10 MG, 1 IN 1 D), ORAL
     Route: 048
     Dates: start: 20010101
  2. AVAPRO [Concomitant]
  3. TOPROL-XL [Concomitant]

REACTIONS (1)
  - INTERVERTEBRAL DISC DISORDER [None]
